FAERS Safety Report 7747441 (Version 5)
Quarter: 2015Q4

REPORT INFORMATION
  Report Type: Spontaneous
  Country: US (occurrence: US)
  Receive Date: 20110104
  Receipt Date: 20151009
  Transmission Date: 20160305
  Serious: Yes (Other)
  Sender: FDA-Public Use
  Company Number: US-BAYER-2010-004873

PATIENT
  Age: 71 Year
  Sex: Male
  Weight: 164.17 kg

DRUGS (8)
  1. SUTENT [Concomitant]
     Active Substance: SUNITINIB MALATE
     Indication: MALIGNANT NEOPLASM OF RENAL PELVIS
     Dosage: 50 MG
  2. NEXAVAR [Suspect]
     Active Substance: SORAFENIB
     Indication: MALIGNANT NEOPLASM OF RENAL PELVIS
     Dosage: 200 MG, BID
     Route: 048
  3. ZOMETA [Concomitant]
     Active Substance: ZOLEDRONIC ACID
     Dosage: 40 MG, UNK
  4. NEXAVAR [Suspect]
     Active Substance: SORAFENIB
     Indication: MALIGNANT NEOPLASM OF RENAL PELVIS
     Dosage: 200 MG, BID
     Route: 048
     Dates: start: 20100301
  5. NEXAVAR [Suspect]
     Active Substance: SORAFENIB
     Indication: MALIGNANT NEOPLASM OF RENAL PELVIS
     Dosage: 200 MG, BID
     Route: 048
     Dates: start: 20131008
  6. LOTENSIN [Concomitant]
     Active Substance: BENAZEPRIL HYDROCHLORIDE
     Dosage: 10 MG, QD
  7. TYLENOL WITH CODEINE [Concomitant]
     Active Substance: ACETAMINOPHEN\CODEINE PHOSPHATE
     Dosage: UNK
  8. NEXAVAR [Suspect]
     Active Substance: SORAFENIB
     Indication: MALIGNANT NEOPLASM OF RENAL PELVIS
     Dosage: 400 MG, BID
     Dates: start: 200907

REACTIONS (11)
  - Malignant neoplasm of renal pelvis [None]
  - Skin exfoliation [Unknown]
  - Palmar-plantar erythrodysaesthesia syndrome [Recovering/Resolving]
  - Blister [Not Recovered/Not Resolved]
  - Dyspepsia [None]
  - Diarrhoea [Unknown]
  - Palmar-plantar erythrodysaesthesia syndrome [Unknown]
  - Fatigue [Recovering/Resolving]
  - Alopecia [Unknown]
  - Fatigue [None]
  - Blister [None]

NARRATIVE: CASE EVENT DATE: 200907
